FAERS Safety Report 14614902 (Version 2)
Quarter: 2019Q3

REPORT INFORMATION
  Report Type: Report from Study
  Country: DE (occurrence: DE)
  Receive Date: 20180308
  Receipt Date: 20190916
  Transmission Date: 20191004
  Serious: Yes (Death, Hospitalization)
  Sender: FDA-Public Use
  Company Number: DE-PFIZER INC-2018090884

PATIENT
  Age: 72 Year
  Sex: Female
  Weight: 53 kg

DRUGS (25)
  1. OXALIPLATIN. [Suspect]
     Active Substance: OXALIPLATIN
     Dosage: 85 MG/M2, UNK
     Route: 042
     Dates: start: 20120724, end: 20121010
  2. LEUCOVORIN /00566701/ [Concomitant]
     Active Substance: LEUCOVORIN
     Dosage: UNK
     Dates: start: 20120524
  3. LEUCOVORIN /00566701/ [Concomitant]
     Active Substance: LEUCOVORIN
     Dosage: UNK
     Dates: start: 20120724, end: 20120926
  4. FOSFOMYCIN [Concomitant]
     Active Substance: FOSFOMYCIN
     Dosage: 3000 MG, AS NEEDED
  5. GRANISETRON [Concomitant]
     Active Substance: GRANISETRON
     Dosage: 2 MG, UNK
  6. NEBIVOLOL. [Concomitant]
     Active Substance: NEBIVOLOL
     Dosage: 5 MG, 1X/DAY
  7. OXALIPLATIN. [Suspect]
     Active Substance: OXALIPLATIN
     Indication: ADENOCARCINOMA GASTRIC
     Dosage: 85 MG/M2, UNK
     Route: 042
     Dates: start: 20120524, end: 20120710
  8. KREON [Concomitant]
     Active Substance: PANCRELIPASE
     Dosage: 60000 IU, 1X/DAY
  9. MCP [Concomitant]
     Active Substance: METOCLOPRAMIDE HYDROCHLORIDE
     Dosage: UNK
     Route: 048
  10. NEUROTRAT FORTE [Concomitant]
     Dosage: 2 DF, 1X/DAY
  11. FLUOROURACIL. [Suspect]
     Active Substance: FLUOROURACIL
     Dosage: 2600 MG/M2, UNK
     Route: 042
     Dates: start: 20120724, end: 20121010
  12. LEUCOVORIN /00566701/ [Concomitant]
     Active Substance: LEUCOVORIN
     Dosage: UNK
     Dates: start: 20121010
  13. FLUOROURACIL. [Suspect]
     Active Substance: FLUOROURACIL
     Indication: ADENOCARCINOMA GASTRIC
     Dosage: 2600 MG/M2, UNK
     Route: 042
     Dates: start: 20120524, end: 20120710
  14. DOCETAXEL. [Suspect]
     Active Substance: DOCETAXEL
     Indication: ADENOCARCINOMA GASTRIC
     Dosage: UNK
     Route: 042
     Dates: start: 20120524, end: 20120710
  15. NOVALGIN [Concomitant]
     Dosage: UNK
     Route: 048
     Dates: start: 20120604, end: 20120605
  16. LEVOTHYROXINE. [Concomitant]
     Active Substance: LEVOTHYROXINE
     Dosage: 50 UG, 1X/DAY
  17. XELODA [Suspect]
     Active Substance: CAPECITABINE
     Indication: ADENOCARCINOMA GASTRIC
     Dosage: UNK
     Dates: start: 20111114, end: 20121213
  18. HERCEPTIN [Suspect]
     Active Substance: TRASTUZUMAB
     Indication: ADENOCARCINOMA GASTRIC
     Dosage: 6 MG/KG, UNK
     Route: 042
     Dates: start: 20120524, end: 20120710
  19. HERCEPTIN [Suspect]
     Active Substance: TRASTUZUMAB
     Dosage: UNK
     Dates: start: 20121010
  20. VITAMIN B12 [Concomitant]
     Active Substance: CYANOCOBALAMIN
     Dosage: 1000 UG, EVERY 3 MONTHS
     Route: 058
  21. DOCETAXEL. [Suspect]
     Active Substance: DOCETAXEL
     Dosage: UNK
     Route: 042
     Dates: start: 20120724, end: 20120926
  22. HERCEPTIN [Suspect]
     Active Substance: TRASTUZUMAB
     Dosage: 6 MG/KG, UNK
     Route: 042
     Dates: start: 20120724, end: 20120926
  23. LOPERAMIDE [Concomitant]
     Active Substance: LOPERAMIDE
     Dosage: 2 MG, UNK
  24. SIMVASTATIN. [Concomitant]
     Active Substance: SIMVASTATIN
     Dosage: 20 MG, 1X/DAY
  25. ENALAPRIL [Concomitant]
     Active Substance: ENALAPRIL
     Dosage: 20 MG, 1X/DAY

REACTIONS (22)
  - Pyrexia [Recovered/Resolved]
  - Urinary tract infection [Recovered/Resolved]
  - Dehydration [Recovered/Resolved]
  - Syncope [Recovered/Resolved]
  - Cachexia [Unknown]
  - Dehydration [Recovered/Resolved]
  - Device occlusion [Recovered/Resolved]
  - Dizziness [Recovered/Resolved]
  - Weight decreased [Recovered/Resolved with Sequelae]
  - Asthenia [Recovered/Resolved]
  - Pulmonary oedema [Recovered/Resolved with Sequelae]
  - General physical health deterioration [Fatal]
  - Leukopenia [Recovered/Resolved]
  - Gait disturbance [Recovered/Resolved]
  - Atrioventricular block [Recovered/Resolved]
  - Pneumonia [Fatal]
  - Dyspnoea [Fatal]
  - Hypokalaemia [Recovered/Resolved]
  - Acute kidney injury [Recovered/Resolved]
  - Urosepsis [Recovered/Resolved]
  - Anaemia [Recovered/Resolved]
  - General physical health deterioration [Recovered/Resolved]

NARRATIVE: CASE EVENT DATE: 20120604
